FAERS Safety Report 15527652 (Version 4)
Quarter: 2018Q4

REPORT INFORMATION
  Report Type: Report from Study
  Country: US (occurrence: US)
  Receive Date: 20181018
  Receipt Date: 20181231
  Transmission Date: 20190205
  Serious: Yes (Other)
  Sender: FDA-Public Use
  Company Number: US-AMGEN-USASL2018130231

PATIENT
  Age: 70 Year
  Sex: Female

DRUGS (2)
  1. REPATHA [Suspect]
     Active Substance: EVOLOCUMAB
     Indication: HYPERLIPIDAEMIA
     Dosage: 140 MG, Q2WK
     Route: 058
  2. REPATHA [Suspect]
     Active Substance: EVOLOCUMAB
     Indication: HYPERCHOLESTEROLAEMIA

REACTIONS (14)
  - Injection site haemorrhage [Unknown]
  - Pruritus generalised [Unknown]
  - Injection site pain [Unknown]
  - Skin ulcer [Unknown]
  - Dysphagia [Recovered/Resolved]
  - Cardiac flutter [Recovered/Resolved]
  - Pain in extremity [Unknown]
  - Unevaluable event [Unknown]
  - Injection site discolouration [Unknown]
  - Myalgia [Unknown]
  - Palpitations [Recovered/Resolved]
  - Chest discomfort [Recovered/Resolved]
  - Diverticulitis [Unknown]
  - Arthralgia [Unknown]

NARRATIVE: CASE EVENT DATE: 2018
